FAERS Safety Report 16796271 (Version 1)
Quarter: 2019Q3

REPORT INFORMATION
  Report Type: Spontaneous
  Country: GB (occurrence: GB)
  Receive Date: 20190911
  Receipt Date: 20190911
  Transmission Date: 20191005
  Serious: Yes (Hospitalization, Other)
  Sender: FDA-Public Use
  Company Number: PHHY2019GB208131

PATIENT
  Sex: Female

DRUGS (2)
  1. COCODAMOL [Suspect]
     Active Substance: ACETAMINOPHEN\CODEINE PHOSPHATE
     Indication: PAIN
     Dosage: 2 DF, UNK (CODAMOL 8/500 TABLETS; 2 TO BE TAKEN EVERY 4 TO 6 HOURS WHEN REQUIRED )
     Route: 065
  2. COCODAMOL [Suspect]
     Active Substance: ACETAMINOPHEN\CODEINE PHOSPHATE
     Dosage: 2 DF, UNK (CO-CODAMOL 30/500 TABLETS; AT NIGHT )
     Route: 065

REACTIONS (8)
  - Pallor [Unknown]
  - Incorrect dose administered [Unknown]
  - Malaise [Unknown]
  - Gait disturbance [Unknown]
  - Feeling abnormal [Unknown]
  - Myocardial infarction [Unknown]
  - Product dispensing error [Unknown]
  - Pain [Unknown]
